FAERS Safety Report 18373710 (Version 5)
Quarter: 2021Q1

REPORT INFORMATION
  Report Type: Report from Study
  Country: None (occurrence: JP)
  Receive Date: 20201013
  Receipt Date: 20210316
  Transmission Date: 20210419
  Serious: Yes (Hospitalization)
  Sender: FDA-Public Use
  Company Number: JP-ABBVIE-18S-087-2512089-00

PATIENT
  Age: 76 Year
  Sex: Female
  Weight: 47 kg

DRUGS (20)
  1. DUODOPA [Suspect]
     Active Substance: CARBIDOPA\LEVODOPA
     Dosage: MD: 8 ML CD: 2.7 ML/HR X 16 HR
     Route: 050
     Dates: start: 20180902, end: 20180903
  2. ROTIGOTINE [Concomitant]
     Active Substance: ROTIGOTINE
     Route: 062
     Dates: start: 20180830, end: 20180903
  3. ROTIGOTINE [Concomitant]
     Active Substance: ROTIGOTINE
     Route: 062
     Dates: start: 20180904, end: 20180907
  4. ESOMEPRAZOLE MAGNESIUM HYDRATE [Concomitant]
     Active Substance: ESOMEPRAZOLE MAGNESIUM
     Indication: PRODUCT USED FOR UNKNOWN INDICATION
     Route: 048
     Dates: start: 20180816
  5. DUODOPA [Suspect]
     Active Substance: CARBIDOPA\LEVODOPA
     Dosage: MD: 8 ML CD: 2.5 ML/HR X 16 HR ED: 1 ML/UNIT X 2
     Route: 050
     Dates: start: 20180817, end: 20180822
  6. DUODOPA [Suspect]
     Active Substance: CARBIDOPA\LEVODOPA
     Dosage: MD: 8 ML CD: 2.6 ML/HR X 16 HR
     Route: 050
     Dates: start: 20180831, end: 20180901
  7. LORAZEPAM. [Concomitant]
     Active Substance: LORAZEPAM
     Indication: PRODUCT USED FOR UNKNOWN INDICATION
     Route: 048
     Dates: start: 20181005
  8. DUODOPA [Suspect]
     Active Substance: CARBIDOPA\LEVODOPA
     Dosage: MD: 8 ML CD: 3.0 ML/HR X 16 HR
     Route: 050
     Dates: start: 20180904, end: 20180909
  9. DUODOPA [Suspect]
     Active Substance: CARBIDOPA\LEVODOPA
     Dosage: MD: 8 ML CD: 3.0 ML/HR X 16 HR
     Route: 050
     Dates: start: 20180910, end: 20180917
  10. KETOPROFEN. [Concomitant]
     Active Substance: KETOPROFEN
     Indication: PRODUCT USED FOR UNKNOWN INDICATION
     Route: 062
     Dates: start: 20181024
  11. ROTIGOTINE [Concomitant]
     Active Substance: ROTIGOTINE
     Indication: PARKINSON^S DISEASE
     Route: 062
     Dates: start: 20180822, end: 20180826
  12. ROTIGOTINE [Concomitant]
     Active Substance: ROTIGOTINE
     Route: 062
     Dates: start: 20180827, end: 20180829
  13. DUODOPA [Suspect]
     Active Substance: CARBIDOPA\LEVODOPA
     Dosage: MD: 8 ML CD: 2.5 ML/HR X 16 HR
     Route: 050
     Dates: start: 20180824, end: 20180830
  14. DUODOPA [Suspect]
     Active Substance: CARBIDOPA\LEVODOPA
     Dosage: MD: 8 ML CD: 2.8 ML/HR X 16 HRS
     Route: 050
     Dates: start: 20190319
  15. CARBIDOPA HYDRATE LEVODOPA MIXTURE [Concomitant]
     Route: 048
     Dates: start: 20180822, end: 20180823
  16. ZOLPIDEM TARTRATE. [Concomitant]
     Active Substance: ZOLPIDEM TARTRATE
     Indication: PRODUCT USED FOR UNKNOWN INDICATION
     Route: 048
     Dates: start: 20180912
  17. DUODOPA [Suspect]
     Active Substance: CARBIDOPA\LEVODOPA
     Dosage: MD: 8 ML CD: 3.2 ML/HR X 16 HR
     Route: 050
     Dates: start: 20180918, end: 20190317
  18. DUODOPA [Suspect]
     Active Substance: CARBIDOPA\LEVODOPA
     Dosage: MD: 8 ML CD: 3.1 ML/HR X 16 HR
     Route: 050
     Dates: start: 20190318, end: 20190318
  19. CARBIDOPA HYDRATE LEVODOPA MIXTURE [Concomitant]
     Indication: PARKINSON^S DISEASE
     Route: 048
  20. DUODOPA [Suspect]
     Active Substance: CARBIDOPA\LEVODOPA
     Indication: PARKINSON^S DISEASE
     Dosage: MD: 8 ML CD: 2.0 ML/HR X 16 HR ED: 1 ML/UNIT X 3
     Route: 050
     Dates: start: 20180814, end: 20180816

REACTIONS (6)
  - Fracture [Unknown]
  - Malaise [Unknown]
  - Fall [Unknown]
  - Visual impairment [Unknown]
  - Musculoskeletal disorder [Unknown]
  - Femur fracture [Recovered/Resolved]

NARRATIVE: CASE EVENT DATE: 20200613
